FAERS Safety Report 7188693-X (Version None)
Quarter: 2010Q4

REPORT INFORMATION
  Report Type: 
  Country: None (occurrence: None)
  Receive Date: 20101222
  Receipt Date: 20100726
  Transmission Date: 20110411
  Serious: No
  Sender: FDA-Public Use
  Company Number: US-AMGEN-KDL427308

PATIENT

DRUGS (1)
  1. ENBREL [Suspect]
     Indication: PSORIATIC ARTHROPATHY
     Dosage: 75 MG, QWK
     Route: 058
     Dates: start: 20040316, end: 20100401

REACTIONS (1)
  - PSORIATIC ARTHROPATHY [None]
